FAERS Safety Report 4731156-9 (Version None)
Quarter: 2005Q3

REPORT INFORMATION
  Report Type: 
  Country: None (occurrence: None)
  Receive Date: 20050802
  Receipt Date: 20050720
  Transmission Date: 20060218
  Serious: Yes (Life-Threatening, Hospitalization)
  Sender: FDA-Public Use
  Company Number: FR-BOEHRINGER INGELHEIM PHARMACEUTICALS, INC.-2005-FF-00528FF

PATIENT
  Sex: Male
  Weight: 83 kg

DRUGS (14)
  1. MICARDIS [Suspect]
     Indication: HYPERTENSION
     Route: 048
     Dates: start: 20040914
  2. HYPERIUM [Concomitant]
     Indication: HYPERTENSION
     Dates: start: 20040723
  3. CORDARONE [Concomitant]
     Indication: ATRIAL FIBRILLATION
     Dates: start: 20040715
  4. PREVISCAN [Concomitant]
     Indication: ATRIAL FIBRILLATION
     Dates: start: 20040715
  5. LASILIX [Concomitant]
     Indication: HYPERTENSION
  6. LEXOMIL [Concomitant]
     Indication: ANXIETY
     Dates: start: 20040714
  7. TIAPRIDAL [Concomitant]
     Dates: start: 20040711
  8. MONO-TILDIEM [Concomitant]
     Indication: HYPERTENSION
  9. NOVONORM [Concomitant]
     Indication: DIABETES MELLITUS NON-INSULIN-DEPENDENT
  10. IMOVANE [Concomitant]
     Indication: INSOMNIA
     Dates: start: 20040711
  11. ARANESC [Concomitant]
     Indication: ANAEMIA
     Dates: start: 20040817
  12. TARDYFERON [Concomitant]
     Indication: IRON DEFICIENCY
     Dates: start: 20040817
  13. LESCOL [Concomitant]
     Indication: DYSLIPIDAEMIA
     Dates: start: 20040929
  14. INSULIN [Concomitant]
     Indication: DIABETES MELLITUS NON-INSULIN-DEPENDENT

REACTIONS (4)
  - BRADYCARDIA [None]
  - HAEMODIALYSIS [None]
  - HYPERKALAEMIA [None]
  - SHOCK [None]
